FAERS Safety Report 24126898 (Version 1)
Quarter: 2024Q3

REPORT INFORMATION
  Report Type: Spontaneous
  Country: FR (occurrence: FR)
  Receive Date: 20240723
  Receipt Date: 20240723
  Transmission Date: 20241017
  Serious: Yes (Death)
  Sender: RANBAXY
  Company Number: FR-AFSSAPS-PC2024000314

PATIENT
  Age: 79 Year
  Sex: Male
  Weight: 60 kg

DRUGS (2)
  1. ALLOPURINOL [Suspect]
     Active Substance: ALLOPURINOL
     Indication: Renal failure
     Dosage: 100 MILLIGRAM, DAILY
     Route: 048
     Dates: start: 20231115, end: 20231224
  2. URAPIDIL [Suspect]
     Active Substance: URAPIDIL
     Indication: Hypertension
     Dosage: 30MG MORNING AND EVENING
     Route: 048
     Dates: start: 20231115, end: 20231224

REACTIONS (1)
  - Drug reaction with eosinophilia and systemic symptoms [Fatal]

NARRATIVE: CASE EVENT DATE: 20231224
